FAERS Safety Report 16526423 (Version 1)
Quarter: 2019Q3

REPORT INFORMATION
  Report Type: Spontaneous
  Country: US (occurrence: US)
  Receive Date: 20190703
  Receipt Date: 20190703
  Transmission Date: 20191004
  Serious: Yes (Hospitalization, Other)
  Sender: FDA-Public Use
  Company Number: US-MYLANLABS-2019M1061216

PATIENT
  Age: 56 Year
  Sex: Female

DRUGS (6)
  1. METHOTREXATE. [Suspect]
     Active Substance: METHOTREXATE
     Indication: PSORIATIC ARTHROPATHY
     Dosage: INITIAL DOSE NOT STATED; THREE MONTHS PRIOR TO PRESENTATION, DOSE INCREASED TO 15 MG WEEKLY
     Route: 065
  2. METHOTREXATE. [Suspect]
     Active Substance: METHOTREXATE
     Indication: PSORIASIS
  3. MYCOPHENOLATE MOFETIL. [Suspect]
     Active Substance: MYCOPHENOLATE MOFETIL
     Indication: PSORIASIS
     Route: 065
  4. HYDROXYCHLOROQUINE [Suspect]
     Active Substance: HYDROXYCHLOROQUINE
     Indication: PSORIASIS
     Route: 065
  5. HYDROXYCHLOROQUINE [Suspect]
     Active Substance: HYDROXYCHLOROQUINE
     Indication: PSORIATIC ARTHROPATHY
  6. MYCOPHENOLATE MOFETIL. [Suspect]
     Active Substance: MYCOPHENOLATE MOFETIL
     Indication: PSORIATIC ARTHROPATHY

REACTIONS (6)
  - Hypercalcaemia [Recovered/Resolved]
  - Bone marrow failure [Recovering/Resolving]
  - Acute kidney injury [Recovered/Resolved]
  - Off label use [Recovering/Resolving]
  - Lymphoproliferative disorder [Recovering/Resolving]
  - Pancytopenia [Recovering/Resolving]
